FAERS Safety Report 25734273 (Version 1)
Quarter: 2025Q3

REPORT INFORMATION
  Report Type: Report from Study
  Country: CA (occurrence: CA)
  Receive Date: 20250828
  Receipt Date: 20250828
  Transmission Date: 20251020
  Serious: Yes (Other)
  Sender: CELLTRION
  Company Number: CA-CELLTRION INC.-2025CA025100

PATIENT

DRUGS (7)
  1. INFLIXIMAB-DYYB [Suspect]
     Active Substance: INFLIXIMAB-DYYB
     Indication: Crohn^s disease
     Dosage: MAINTENANCE: 120 MG, Q2WEEKS
     Route: 058
     Dates: start: 20250416
  2. INFLIXIMAB-DYYB [Suspect]
     Active Substance: INFLIXIMAB-DYYB
     Dosage: Q2WEEKS
     Dates: start: 20250611
  3. INFLIXIMAB-DYYB [Suspect]
     Active Substance: INFLIXIMAB-DYYB
     Dosage: Q2WEEKS
     Dates: start: 20250709
  4. PREDNISONE [Concomitant]
     Active Substance: PREDNISONE
     Indication: Premedication
  5. DENOSUMAB [Concomitant]
     Active Substance: DENOSUMAB
  6. LITHIUM CARBONATE [Concomitant]
     Active Substance: LITHIUM CARBONATE
  7. PROPRANOLOL [Concomitant]
     Active Substance: PROPRANOLOL HYDROCHLORIDE

REACTIONS (9)
  - Influenza like illness [Unknown]
  - Haemorrhage [Unknown]
  - Eye contusion [Unknown]
  - Contusion [Unknown]
  - Lower respiratory tract infection [Not Recovered/Not Resolved]
  - Hyperhidrosis [Unknown]
  - Chills [Unknown]
  - Headache [Unknown]
  - Malaise [Unknown]

NARRATIVE: CASE EVENT DATE: 20250416
